FAERS Safety Report 11131034 (Version 2)
Quarter: 2015Q2

REPORT INFORMATION
  Report Type: Spontaneous
  Country: US (occurrence: US)
  Receive Date: 20150522
  Receipt Date: 20150613
  Transmission Date: 20150821
  Serious: No
  Sender: FDA-Public Use
  Company Number: US-BIOGENIDEC-2015BI067788

PATIENT
  Age: 57 Year
  Sex: Female

DRUGS (1)
  1. TECFIDERA [Suspect]
     Active Substance: DIMETHYL FUMARATE
     Indication: RELAPSING-REMITTING MULTIPLE SCLEROSIS
     Route: 048
     Dates: start: 20150324, end: 20150420

REACTIONS (9)
  - Dyspnoea [Recovered/Resolved]
  - Sensation of foreign body [Recovered/Resolved]
  - Constipation [Recovered/Resolved]
  - Choking sensation [Recovered/Resolved]
  - Dysgeusia [Recovered/Resolved]
  - Muscle spasms [Recovered/Resolved]
  - Hepatic enzyme increased [Recovered/Resolved]
  - Cough [Not Recovered/Not Resolved]
  - Liver function test abnormal [Recovered/Resolved]

NARRATIVE: CASE EVENT DATE: 201504
